FAERS Safety Report 24111597 (Version 1)
Quarter: 2024Q3

REPORT INFORMATION
  Report Type: Spontaneous
  Country: NO (occurrence: NO)
  Receive Date: 20240718
  Receipt Date: 20240718
  Transmission Date: 20241016
  Serious: Yes (Death)
  Sender: TEVA
  Company Number: None

PATIENT
  Age: 58 Year
  Sex: Male

DRUGS (1)
  1. SILDENAFIL [Suspect]
     Active Substance: SILDENAFIL
     Indication: Product used for unknown indication
     Dosage: UKNOWN; SILDENAFIL ACTAVIS
     Route: 048

REACTIONS (2)
  - Cardiac arrest [Fatal]
  - Vomiting [Fatal]

NARRATIVE: CASE EVENT DATE: 20240622
